FAERS Safety Report 6772022-7 (Version None)
Quarter: 2010Q2

REPORT INFORMATION
  Report Type: 
  Country: None (occurrence: None)
  Receive Date: 20100616
  Receipt Date: 20100604
  Transmission Date: 20101027
  Serious: No
  Sender: FDA-Public Use
  Company Number: US-B.I. PHARMACEUTICALS,INC./RIDGEFIELD-2010-BP-06404BP

PATIENT

DRUGS (3)
  1. VIRAMUNE [Suspect]
  2. LAMIVUDINE [Concomitant]
  3. ZIDOVUDINE [Concomitant]

REACTIONS (1)
  - ABDOMINAL DISTENSION [None]
